FAERS Safety Report 9382080 (Version 1)
Quarter: 2013Q3

REPORT INFORMATION
  Report Type: Spontaneous
  Country: ES (occurrence: ES)
  Receive Date: 20130703
  Receipt Date: 20130703
  Transmission Date: 20140515
  Serious: Yes (Hospitalization)
  Sender: FDA-Public Use
  Company Number: ES-B.I. PHARMACEUTICALS,INC./RIDGEFIELD-2013-ES-00311ES

PATIENT
  Age: 82 Year
  Sex: Female

DRUGS (1)
  1. PRADAXA [Suspect]
     Indication: ATRIAL FIBRILLATION
     Dosage: 300 MG
     Route: 048
     Dates: start: 20121203, end: 20130424

REACTIONS (2)
  - Ischaemic stroke [Not Recovered/Not Resolved]
  - Drug ineffective [Recovered/Resolved with Sequelae]
